FAERS Safety Report 5159770-X (Version None)
Quarter: 2006Q4

REPORT INFORMATION
  Report Type: 
  Country: None (occurrence: None)
  Receive Date: 20061129
  Receipt Date: 20051128
  Transmission Date: 20070319
  Serious: No
  Sender: FDA-Public Use
  Company Number: 2005-04631

PATIENT
  Age: 55 Year
  Sex: Female
  Weight: 67.7 kg

DRUGS (5)
  1. BUPROPION HCL [Suspect]
     Indication: DEPRESSION
     Dosage: 150MG PER DAY
     Route: 048
     Dates: start: 20051110, end: 20051128
  2. THYROID TAB [Concomitant]
  3. CLONAZEPAM [Concomitant]
     Indication: ANXIETY
     Dosage: 1MG PER DAY
     Route: 048
     Dates: start: 20050801
  4. ABILIFY [Concomitant]
     Indication: DEPRESSION
     Dates: start: 20051001
  5. CYMBALTA [Concomitant]
     Indication: DEPRESSION
     Dates: start: 20051001

REACTIONS (6)
  - AGITATION [None]
  - ANXIETY [None]
  - CRYING [None]
  - DEPRESSION [None]
  - DRUG INEFFECTIVE [None]
  - PHARMACEUTICAL PRODUCT COMPLAINT [None]
